FAERS Safety Report 19876970 (Version 1)
Quarter: 2021Q3

REPORT INFORMATION
  Report Type: Spontaneous
  Country: DE (occurrence: DE)
  Receive Date: 20210924
  Receipt Date: 20210924
  Transmission Date: 20211014
  Serious: Yes (Other)
  Sender: FDA-Public Use
  Company Number: DE-TEVA-2021-DE-1956006

PATIENT
  Age: 1 Day
  Sex: Male

DRUGS (3)
  1. PREDNISOLON [Suspect]
     Active Substance: PREDNISOLONE
     Indication: RHEUMATOID ARTHRITIS
     Dosage: 15 [MG / D (UP TO 5 MG / D)] / DOSE REDUCTION TO 5 MG AT GW 15 , ADDITIONAL INFO :  6. ? 39.5. GESTA
     Route: 064
  2. CIMZIA [Concomitant]
     Active Substance: CERTOLIZUMAB PEGOL
     Indication: RHEUMATOID ARTHRITIS
     Dosage: 200 [MG / D (ACCORDING TO SPECIALIST INFORMATION EVERY 2 WEEKS)] , ADDITIONAL INFO : 8.2. ? 14. GEST
     Route: 064
  3. SULFASALAZINE DELAYED?RELEASE [Suspect]
     Active Substance: SULFASALAZINE
     Indication: RHEUMATOID ARTHRITIS
     Dosage: 2000 MILLIGRAM DAILY; 2000 [MG/D (4X500 MG) ] ,ADDITIONAL INFO : 0. ? 39.5. GESTATIONAL WEEK
     Route: 064
     Dates: start: 20191222, end: 20200925

REACTIONS (2)
  - Small for dates baby [Unknown]
  - Foetal exposure during pregnancy [Unknown]

NARRATIVE: CASE EVENT DATE: 20191222
